FAERS Safety Report 15558156 (Version 11)
Quarter: 2020Q2

REPORT INFORMATION
  Report Type: Spontaneous
  Country: CA (occurrence: CA)
  Receive Date: 20181027
  Receipt Date: 20200409
  Transmission Date: 20200713
  Serious: Yes (Disabling, Other)
  Sender: FDA-Public Use
  Company Number: CA-009507513-1512CAN010763

PATIENT
  Age: 75 Year
  Sex: Female

DRUGS (4)
  1. MAXALT [Suspect]
     Active Substance: RIZATRIPTAN BENZOATE
     Dosage: 10 MG, AS NEEDED (PRN)
     Route: 048
     Dates: start: 2016
  2. MAXALT [Suspect]
     Active Substance: RIZATRIPTAN BENZOATE
     Indication: MIGRAINE
     Dosage: 2 WAFERS IN 24 HOURS AND MAXIMUM 6 WAFERS PER WEEK (10 MILLIGRAM, PRN)
     Route: 048
     Dates: start: 201602
  3. MAXALT [Suspect]
     Active Substance: RIZATRIPTAN BENZOATE
     Dosage: 1 TABLET AT FIRST SIGN OF HEADACHE, MAY TAKE ANOTHER AFTER 2 HRS. NO MORE THAN/ UP TO  2 TABLET PER
     Route: 048
     Dates: start: 201602
  4. MAXALT [Suspect]
     Active Substance: RIZATRIPTAN BENZOATE
     Dosage: 10 MG, AS NEEDED (PRN)
     Route: 048
     Dates: start: 2016

REACTIONS (33)
  - Cystitis [Unknown]
  - Nausea [Unknown]
  - Therapeutic response decreased [Not Recovered/Not Resolved]
  - Drug ineffective [Not Recovered/Not Resolved]
  - Dyspnoea [Unknown]
  - Therapeutic response decreased [Unknown]
  - Headache [Not Recovered/Not Resolved]
  - Rectal prolapse [Unknown]
  - Lower respiratory tract infection [Not Recovered/Not Resolved]
  - Fall [Unknown]
  - Gastrointestinal disorder [Unknown]
  - Sinusitis [Not Recovered/Not Resolved]
  - Dyspnoea [Unknown]
  - Dizziness [Unknown]
  - Osteoarthritis [Unknown]
  - Haemothorax [Unknown]
  - Migraine [Not Recovered/Not Resolved]
  - Malaise [Unknown]
  - Pain [Not Recovered/Not Resolved]
  - Insomnia [Unknown]
  - Product quality issue [Unknown]
  - Wrong technique in product usage process [Unknown]
  - Cystitis [Unknown]
  - Pain [Unknown]
  - Multiple fractures [Unknown]
  - Cognitive disorder [Unknown]
  - Upper limb fracture [Unknown]
  - Fall [Unknown]
  - Abdominal pain [Unknown]
  - Back pain [Unknown]
  - Feeling abnormal [Unknown]
  - Drug ineffective [Unknown]
  - Migraine [Unknown]

NARRATIVE: CASE EVENT DATE: 2016
